FAERS Safety Report 16089437 (Version 3)
Quarter: 2019Q3

REPORT INFORMATION
  Report Type: Report from Study
  Country: US (occurrence: US)
  Receive Date: 20190319
  Receipt Date: 20190829
  Transmission Date: 20191004
  Serious: Yes (Other)
  Sender: FDA-Public Use
  Company Number: US-PFIZER INC-2019073546

PATIENT
  Age: 56 Year
  Sex: Male

DRUGS (2)
  1. BOSULIF [Suspect]
     Active Substance: BOSUTINIB MONOHYDRATE
     Dosage: 300 MG, DAILY
     Route: 048
     Dates: start: 20190208
  2. BOSULIF [Suspect]
     Active Substance: BOSUTINIB MONOHYDRATE
     Indication: CHRONIC MYELOID LEUKAEMIA
     Dosage: 400 MG, DAILY
     Route: 048
     Dates: start: 20190208

REACTIONS (8)
  - Cough [Unknown]
  - Arthralgia [Unknown]
  - Seasonal allergy [Unknown]
  - Melaena [Unknown]
  - Urine abnormality [Unknown]
  - Rhinorrhoea [Unknown]
  - Contusion [Unknown]
  - Diarrhoea [Unknown]
